FAERS Safety Report 10222962 (Version 1)
Quarter: 2014Q2

REPORT INFORMATION
  Report Type: Spontaneous
  Country: IT (occurrence: IT)
  Receive Date: 20140607
  Receipt Date: 20140607
  Transmission Date: 20141212
  Serious: Yes (Life-Threatening)
  Sender: FDA-Public Use
  Company Number: PHHY2014IT065692

PATIENT
  Sex: Female

DRUGS (4)
  1. LAMOTRIGINE [Suspect]
     Indication: DEPRESSION
     Dosage: 25 MG, QD
     Route: 048
     Dates: start: 20140410, end: 20140501
  2. QUETIAPINE [Suspect]
     Indication: DEPRESSION
     Dosage: 25 MG, QD
     Route: 048
     Dates: start: 20140410, end: 20140501
  3. SERTRALINE [Suspect]
     Indication: DEPRESSION
     Dosage: 50 MG, QD
     Route: 048
     Dates: start: 20140410, end: 20140501
  4. NOVORAPID [Concomitant]
     Dosage: 10 IU, UNK
     Route: 058

REACTIONS (4)
  - Conjunctival abrasion [Not Recovered/Not Resolved]
  - Secretion discharge [Not Recovered/Not Resolved]
  - Oral disorder [Not Recovered/Not Resolved]
  - Rash macular [Not Recovered/Not Resolved]
